FAERS Safety Report 7957075-2 (Version None)
Quarter: 2011Q4

REPORT INFORMATION
  Report Type: 
  Country: None (occurrence: None)
  Receive Date: 20111205
  Receipt Date: 20111201
  Transmission Date: 20120403
  Serious: Yes (Hospitalization)
  Sender: FDA-Public Use
  Company Number: FR-ROCHE-1018305

PATIENT
  Age: 64 Year
  Sex: Female

DRUGS (21)
  1. MYCOPHENOLATE MOFETIL (CELLCEPT) [Suspect]
     Route: 048
     Dates: start: 20110929
  2. TACROLIMUS [Suspect]
     Indication: PRODUCT USED FOR UNKNOWN INDICATION
     Route: 065
     Dates: start: 20110820
  3. MYCOPHENOLATE MOFETIL (CELLCEPT) [Suspect]
     Route: 048
     Dates: start: 20111031, end: 20111114
  4. OMEPRAZOLE [Suspect]
     Indication: PRODUCT USED FOR UNKNOWN INDICATION
     Route: 048
     Dates: start: 20110820
  5. CLORAZEPATE DIPOTASSIUM [Concomitant]
     Dates: end: 20110916
  6. PHOSPHONEUROS [Concomitant]
     Dates: end: 20110916
  7. PHOSPHONEUROS [Concomitant]
     Dates: start: 20111112
  8. AMLODIPINE BESYLATE [Suspect]
     Indication: PRODUCT USED FOR UNKNOWN INDICATION
     Route: 048
     Dates: end: 20110916
  9. PREVISCAN [Concomitant]
     Dates: end: 20111112
  10. SODIUM BICARBONATE [Concomitant]
  11. PREDNISOLONE [Suspect]
     Indication: PRODUCT USED FOR UNKNOWN INDICATION
     Route: 048
     Dates: start: 20110820, end: 20110927
  12. PROPRANOLOL [Suspect]
     Indication: PRODUCT USED FOR UNKNOWN INDICATION
     Route: 048
     Dates: end: 20110916
  13. BACTRIM [Concomitant]
     Dates: end: 20110927
  14. MYCOPHENOLATE MOFETIL (CELLCEPT) [Suspect]
     Indication: PRODUCT USED FOR UNKNOWN INDICATION
     Route: 048
     Dates: start: 20110820
  15. CLORAZEPATE DIPOTASSIUM [Suspect]
     Indication: PRODUCT USED FOR UNKNOWN INDICATION
     Route: 048
     Dates: end: 20110916
  16. ARANESP [Concomitant]
     Route: 058
     Dates: end: 20111113
  17. PREVISCAN [Concomitant]
     Dates: end: 20110916
  18. VALGANCICLOVIR [Concomitant]
     Dates: end: 20111010
  19. MYCOPHENOLATE MOFETIL (CELLCEPT) [Suspect]
     Route: 048
  20. FERROUS SULFATE TAB [Concomitant]
     Dates: end: 20110916
  21. MAG 2 [Concomitant]
     Dates: end: 20110916

REACTIONS (1)
  - AGRANULOCYTOSIS [None]
